FAERS Safety Report 9842936 (Version 1)
Quarter: 2013Q4

REPORT INFORMATION
  Report Type: Spontaneous
  Country: US (occurrence: None)
  Receive Date: 20131211
  Receipt Date: 20131211
  Transmission Date: 20140711
  Serious: Yes (Hospitalization)
  Sender: FDA-Public Use
  Company Number: ALL1-2012-04370

PATIENT
  Age: 39 Year
  Sex: Female
  Weight: 113.4 kg

DRUGS (2)
  1. LIALDA [Suspect]
     Indication: COLITIS ULCERATIVE
     Dosage: 1.2 G . 4X/DAY:QID, ORAL
     Route: 048
     Dates: start: 20120805, end: 20120830
  2. LISINIOPRIL (LISINOPRIL) [Concomitant]

REACTIONS (4)
  - Pancreatitis [None]
  - Hypotension [None]
  - Diarrhoea haemorrhagic [None]
  - Inappropriate schedule of drug administration [None]
